FAERS Safety Report 8175302-6 (Version None)
Quarter: 2012Q1

REPORT INFORMATION
  Report Type: 
  Country: None (occurrence: None)
  Receive Date: 20120229
  Receipt Date: 20120221
  Transmission Date: 20120608
  Serious: Yes (Other)
  Sender: FDA-Public Use
  Company Number: PHHY2012DE015998

PATIENT
  Sex: Male

DRUGS (5)
  1. DYNORM PLUS [Concomitant]
  2. EXFORGE [Suspect]
     Indication: HYPERTENSION
     Dosage: 1 DF (160 MG VALSAR AND 5 MG AMLO), UNK
  3. RASILEZ [Suspect]
     Indication: HYPERTENSION
  4. EZETIMIBE [Concomitant]
  5. BETA BLOCKING AGENTS [Concomitant]

REACTIONS (11)
  - MYALGIA [None]
  - BLOOD PRESSURE INCREASED [None]
  - BLOOD CHOLESTEROL INCREASED [None]
  - RENAL IMPAIRMENT [None]
  - DISCOMFORT [None]
  - ARTHRALGIA [None]
  - HYPERTROPHIC CARDIOMYOPATHY [None]
  - BLOOD GLUCOSE INCREASED [None]
  - DYSPNOEA [None]
  - CONSTIPATION [None]
  - LIVER FUNCTION TEST ABNORMAL [None]
